FAERS Safety Report 13763628 (Version 2)
Quarter: 2017Q3

REPORT INFORMATION
  Report Type: Report from Study
  Country: None (occurrence: RO)
  Receive Date: 20170718
  Receipt Date: 20170810
  Transmission Date: 20171127
  Serious: Yes (Death, Hospitalization, Other)
  Sender: FDA-Public Use
  Company Number: RO-ABBVIE-17P-135-2038208-00

PATIENT
  Age: 65 Year
  Sex: Male

DRUGS (3)
  1. DUODOPA [Suspect]
     Active Substance: CARBIDOPA\LEVODOPA
     Indication: PARKINSON^S DISEASE
     Dosage: MD-6.8;CR-3.4;ED-1.8
     Route: 050
     Dates: start: 20151015
  2. OMNIC TOCAS [Concomitant]
     Indication: PROSTATIC ADENOMA
  3. COAXIL [Concomitant]
     Active Substance: TIANEPTINE SODIUM
     Indication: DEPRESSION

REACTIONS (2)
  - Sepsis [Recovering/Resolving]
  - Death [Fatal]

NARRATIVE: CASE EVENT DATE: 20170711
